FAERS Safety Report 21044345 (Version 1)
Quarter: 2022Q3

REPORT INFORMATION
  Report Type: Spontaneous
  Country: US (occurrence: None)
  Receive Date: 20220704
  Receipt Date: 20220704
  Transmission Date: 20221027
  Serious: Yes (unspecified)
  Sender: FDA-Public Use
  Company Number: None

PATIENT
  Age: 21 Year
  Sex: Female
  Weight: 48.6 kg

DRUGS (4)
  1. ADAPALENE AND BENZOYL PEROXIDE [Suspect]
     Active Substance: ADAPALENE\BENZOYL PEROXIDE
     Indication: Acne
     Dosage: FREQUENCY : AT BEDTIME;?
     Route: 061
     Dates: start: 20220630, end: 20220703
  2. LAMOTRIGINE [Concomitant]
     Active Substance: LAMOTRIGINE
  3. RISPERIDONE [Concomitant]
     Active Substance: RISPERIDONE
  4. SLYND [Concomitant]
     Active Substance: DROSPIRENONE

REACTIONS (1)
  - Application site pain [None]

NARRATIVE: CASE EVENT DATE: 20220703
